FAERS Safety Report 16032851 (Version 4)
Quarter: 2024Q2

REPORT INFORMATION
  Report Type: Other
  Country: PT (occurrence: None)
  Receive Date: 20190305
  Receipt Date: 20240402
  Transmission Date: 20240715
  Serious: Yes (Other)
  Sender: FDA-Public Use
  Company Number: PT-ROCHE-2270190

PATIENT
  Age: 64 Year
  Sex: Female
  Weight: 87 kg

DRUGS (33)
  1. PERJETA [Suspect]
     Active Substance: PERTUZUMAB
     Indication: HER2 positive breast cancer
     Route: 042
     Dates: start: 20171024, end: 20180130
  2. PERJETA [Suspect]
     Active Substance: PERTUZUMAB
     Route: 042
     Dates: start: 20180327, end: 20180823
  3. PERJETA [Suspect]
     Active Substance: PERTUZUMAB
     Route: 042
     Dates: start: 20180906, end: 20200218
  4. HERCEPTIN [Suspect]
     Active Substance: TRASTUZUMAB
     Indication: HER2 positive breast cancer
     Route: 041
     Dates: start: 20171024, end: 20180823
  5. HERCEPTIN [Suspect]
     Active Substance: TRASTUZUMAB
     Route: 041
     Dates: start: 20180906, end: 20200218
  6. TAXOTERE [Suspect]
     Active Substance: DOCETAXEL
     Indication: HER2 positive breast cancer
     Route: 042
     Dates: start: 20171024, end: 20180130
  7. FEMARA [Suspect]
     Active Substance: LETROZOLE
     Indication: HER2 positive breast cancer
     Route: 048
     Dates: start: 20180417, end: 20180906
  8. FORMOTEROL [Concomitant]
     Active Substance: FORMOTEROL
  9. BUDESONIDE [Concomitant]
     Active Substance: BUDESONIDE
  10. BILASTINE [Concomitant]
     Active Substance: BILASTINE
  11. METFORMIN [Concomitant]
     Active Substance: METFORMIN HYDROCHLORIDE
  12. LISINOPRIL [Concomitant]
     Active Substance: LISINOPRIL
  13. ROSUVASTATIN [Concomitant]
     Active Substance: ROSUVASTATIN
  14. ZOLPIDEM [Concomitant]
     Active Substance: ZOLPIDEM TARTRATE
  15. ESCITALOPRAM [Concomitant]
     Active Substance: ESCITALOPRAM OXALATE
  16. DIAZEPAM [Concomitant]
     Active Substance: DIAZEPAM
  17. INSULIN PORK\INSULIN PURIFIED PORK [Concomitant]
     Active Substance: INSULIN PORK\INSULIN PURIFIED PORK
  18. ENOXAPARIN [Concomitant]
     Active Substance: ENOXAPARIN
     Dosage: ONGOING = CHECKED
  19. ACETAMINOPHEN [Concomitant]
     Active Substance: ACETAMINOPHEN
     Dates: start: 20180108
  20. ACETAMINOPHEN [Concomitant]
     Active Substance: ACETAMINOPHEN
     Dosage: ONGOING = CHECKED
  21. CEFUROXIME [Concomitant]
     Active Substance: CEFUROXIME
     Indication: Pyelonephritis
     Dates: start: 20180718
  22. THIOCOLCHICOSIDE [Concomitant]
     Active Substance: THIOCOLCHICOSIDE
     Dates: start: 20180108
  23. THIOCOLCHICOSIDE [Concomitant]
     Active Substance: THIOCOLCHICOSIDE
     Dosage: ONGOING = CHECKED
     Dates: start: 20180706
  24. OMEPRAZOLE [Concomitant]
     Active Substance: OMEPRAZOLE
  25. NAPROXEN [Concomitant]
     Active Substance: NAPROXEN
     Dates: start: 20180706
  26. MORPHINE [Concomitant]
     Active Substance: MORPHINE
  27. MONTELUKAST [Concomitant]
     Active Substance: MONTELUKAST SODIUM
  28. BUPRENORPHINE [Concomitant]
     Active Substance: BUPRENORPHINE
     Dates: end: 20180108
  29. LOPERAMIDE [Concomitant]
     Active Substance: LOPERAMIDE
  30. METOCLOPRAMIDE [Concomitant]
     Active Substance: METOCLOPRAMIDE
  31. ALPRAZOLAM [Concomitant]
     Active Substance: ALPRAZOLAM
  32. XGEVA [Concomitant]
     Active Substance: DENOSUMAB
  33. DENOSUMAB [Concomitant]
     Active Substance: DENOSUMAB
     Indication: HER2 positive breast cancer

REACTIONS (2)
  - Cholestasis [Recovered/Resolved]
  - Diarrhoea [Recovered/Resolved]

NARRATIVE: CASE EVENT DATE: 20180130
